FAERS Safety Report 11977918 (Version 1)
Quarter: 2016Q1

REPORT INFORMATION
  Report Type: Spontaneous
  Country: SE (occurrence: SE)
  Receive Date: 20160129
  Receipt Date: 20160129
  Transmission Date: 20160526
  Serious: Yes (Other)
  Sender: FDA-Public Use
  Company Number: SE-SA-2016SA013199

PATIENT
  Sex: Male

DRUGS (4)
  1. CLOPIDOGREL BISULFATE. [Suspect]
     Active Substance: CLOPIDOGREL BISULFATE
     Dosage: 75 MG
     Route: 065
  2. SIMVASTATIN. [Suspect]
     Active Substance: SIMVASTATIN
     Dosage: 20 MG
     Route: 065
  3. LASIX [Suspect]
     Active Substance: FUROSEMIDE
     Dosage: 30 MG
     Route: 065
  4. BEHEPAN [Suspect]
     Active Substance: HYDROXOCOBALAMIN
     Dosage: 1 MG
     Route: 065

REACTIONS (3)
  - Muscle haemorrhage [Unknown]
  - Muscle spasms [Unknown]
  - Pain [Unknown]
